FAERS Safety Report 20851163 (Version 1)
Quarter: 2022Q2

REPORT INFORMATION
  Report Type: Spontaneous
  Country: PH (occurrence: PH)
  Receive Date: 20220519
  Receipt Date: 20220519
  Transmission Date: 20220720
  Serious: Yes (Death, Other)
  Sender: FDA-Public Use
  Company Number: PH-GE HEALTHCARE-2022CSU003190

PATIENT
  Age: 56 Year
  Sex: Female

DRUGS (2)
  1. VISIPAQUE [Suspect]
     Active Substance: IODIXANOL
     Indication: Cerebral endovascular aneurysm repair
     Dosage: UNK, SINGLE
     Route: 065
     Dates: start: 202205, end: 202205
  2. VISIPAQUE [Suspect]
     Active Substance: IODIXANOL
     Indication: Intracranial aneurysm

REACTIONS (2)
  - Death [Fatal]
  - Anaphylactic shock [Unknown]

NARRATIVE: CASE EVENT DATE: 20220501
